FAERS Safety Report 6924432-2 (Version None)
Quarter: 2010Q3

REPORT INFORMATION
  Report Type: 
  Country: None (occurrence: None)
  Receive Date: 20100811
  Receipt Date: 20100802
  Transmission Date: 20110219
  Serious: Yes (Death)
  Sender: FDA-Public Use
  Company Number: DKLU1064086

PATIENT
  Age: 4 Year
  Sex: Female

DRUGS (5)
  1. SABRIL [Suspect]
     Indication: LENNOX-GASTAUT SYNDROME
     Dosage: 1250 MG MILLIGRAM(S), 2 IN 1 D, ORAL
     Route: 048
  2. VALPROATE SODIUM [Concomitant]
  3. KEPPRA [Concomitant]
  4. BANZEL (RUFINAMIDE) [Concomitant]
  5. DIAZEPAM [Concomitant]

REACTIONS (1)
  - CONVULSION [None]
